FAERS Safety Report 7726572-7 (Version None)
Quarter: 2011Q3

REPORT INFORMATION
  Report Type: 
  Country: None (occurrence: None)
  Receive Date: 20110902
  Receipt Date: 20110826
  Transmission Date: 20111222
  Serious: Yes (Other)
  Sender: FDA-Public Use
  Company Number: PHHY2011US68992

PATIENT
  Sex: Female
  Weight: 108 kg

DRUGS (10)
  1. MULTIVITAMIN [Concomitant]
  2. ASPIRIN [Concomitant]
  3. LEVOTHYROXINE SODIUM [Concomitant]
  4. L-LYSINE [Concomitant]
  5. LISINOPRIL [Concomitant]
  6. HUMALOG [Concomitant]
  7. LANTUS [Concomitant]
  8. SIMVASTATIN [Concomitant]
  9. EXJADE [Suspect]
     Indication: IRON OVERLOAD
     Dosage: 500 MG, BID
     Route: 048
     Dates: start: 20110629, end: 20110801
  10. ZOCOR [Concomitant]
     Dosage: 40 MG, QD
     Route: 048

REACTIONS (19)
  - HEADACHE [None]
  - HYPERCHLORHYDRIA [None]
  - COUGH [None]
  - ORAL PAIN [None]
  - PYREXIA [None]
  - NECK PAIN [None]
  - CHILLS [None]
  - BLOOD GLUCOSE ABNORMAL [None]
  - ASTHENIA [None]
  - INFLUENZA LIKE ILLNESS [None]
  - FATIGUE [None]
  - RASH [None]
  - BACK PAIN [None]
  - DYSGEUSIA [None]
  - MALAISE [None]
  - DECREASED APPETITE [None]
  - OROPHARYNGEAL PAIN [None]
  - NAUSEA [None]
  - OEDEMA PERIPHERAL [None]
